FAERS Safety Report 12343137 (Version 1)
Quarter: 2016Q2

REPORT INFORMATION
  Report Type: Spontaneous
  Country: US (occurrence: US)
  Receive Date: 20160506
  Receipt Date: 20160506
  Transmission Date: 20160815
  Serious: Yes (Death, Hospitalization)
  Sender: FDA-Public Use
  Company Number: US-MYLANLABS-2016M1018626

PATIENT

DRUGS (2)
  1. AMLODIPINE [Suspect]
     Active Substance: AMLODIPINE BESYLATE
     Indication: PRODUCT USED FOR UNKNOWN INDICATION
     Dosage: MORE THAN 100 AMLODIPINE (5 MG)
     Route: 048
  2. CARVEDILOL. [Suspect]
     Active Substance: CARVEDILOL
     Indication: PRODUCT USED FOR UNKNOWN INDICATION
     Dosage: MORE THAN 100 CARVEDILOL (3.125 MG)
     Route: 048

REACTIONS (9)
  - Acute respiratory distress syndrome [Fatal]
  - Mental status changes [Not Recovered/Not Resolved]
  - Metabolic acidosis [Fatal]
  - Heart rate decreased [Unknown]
  - Acute kidney injury [Recovering/Resolving]
  - Intentional overdose [Fatal]
  - Toxicity to various agents [Fatal]
  - Respiratory failure [Fatal]
  - Blood pressure decreased [Not Recovered/Not Resolved]
